FAERS Safety Report 6165489-9 (Version None)
Quarter: 2009Q2

REPORT INFORMATION
  Report Type: 
  Country: None (occurrence: None)
  Receive Date: 20090421
  Receipt Date: 20090421
  Transmission Date: 20091009
  Serious: Yes (Hospitalization)
  Sender: FDA-Public Use
  Company Number: None

PATIENT
  Age: 72 Year
  Sex: Female
  Weight: 67.1324 kg

DRUGS (2)
  1. CARBOPLATIN [Suspect]
     Dosage: 689MG Q 21 DAYS IV
     Route: 042
     Dates: start: 20090414, end: 20090414
  2. PACLITAXEL [Suspect]
     Dosage: 352MG Q 21 DAYS IV
     Route: 042
     Dates: start: 20090414, end: 20090414

REACTIONS (1)
  - ABDOMINAL PAIN [None]
